FAERS Safety Report 20970216 (Version 3)
Quarter: 2022Q3

REPORT INFORMATION
  Report Type: Spontaneous
  Country: US (occurrence: US)
  Receive Date: 20220616
  Receipt Date: 20220714
  Transmission Date: 20221027
  Serious: No
  Sender: FDA-Public Use
  Company Number: US-SA-SAC20220606000401

PATIENT
  Age: 65 Year
  Sex: Female
  Weight: 83 kg

DRUGS (15)
  1. DUPIXENT [Suspect]
     Active Substance: DUPILUMAB
     Indication: Asthma
     Dosage: 300 MG, QOW
     Route: 058
     Dates: start: 20220131, end: 20220519
  2. DUPIXENT [Suspect]
     Active Substance: DUPILUMAB
     Indication: Dermatitis allergic
  3. METHYLPREDNISOLONE [Concomitant]
     Active Substance: METHYLPREDNISOLONE
  4. DULOXETINE [Concomitant]
     Active Substance: DULOXETINE
  5. OPZELURA [Concomitant]
     Active Substance: RUXOLITINIB PHOSPHATE
  6. TOBRAMYCIN [Concomitant]
     Active Substance: TOBRAMYCIN
  7. GABAPENTIN [Concomitant]
     Active Substance: GABAPENTIN
  8. OXYCODONE AND ACETAMINOPHEN [Concomitant]
     Active Substance: ACETAMINOPHEN\OXYCODONE HYDROCHLORIDE
  9. AZELASTINE [Concomitant]
     Active Substance: AZELASTINE
  10. DESOXIMETASONE [Concomitant]
     Active Substance: DESOXIMETASONE
  11. MUPIROCIN [Concomitant]
     Active Substance: MUPIROCIN
  12. ALBUTEROL SULFATE [Concomitant]
     Active Substance: ALBUTEROL SULFATE
  13. TRELEGY ELLIPTA [Concomitant]
     Active Substance: FLUTICASONE FUROATE\UMECLIDINIUM BROMIDE\VILANTEROL TRIFENATATE
  14. CLOBETASOL PROPIONATE [Concomitant]
     Active Substance: CLOBETASOL PROPIONATE
  15. COLLAGENASE SANTYL [Concomitant]
     Active Substance: COLLAGENASE CLOSTRIDIUM HISTOLYTICUM

REACTIONS (6)
  - Eye pain [Recovered/Resolved]
  - Dermatitis [Unknown]
  - Erythema [Recovered/Resolved]
  - Hypersensitivity [Unknown]
  - Conjunctivitis [Recovered/Resolved]
  - Product use in unapproved indication [Unknown]

NARRATIVE: CASE EVENT DATE: 20220101
